FAERS Safety Report 7074339-8 (Version None)
Quarter: 2010Q4

REPORT INFORMATION
  Report Type: 
  Country: None (occurrence: None)
  Receive Date: 20101029
  Receipt Date: 20101019
  Transmission Date: 20110411
  Serious: Yes (Hospitalization)
  Sender: FDA-Public Use
  Company Number: DZ-ROCHE-736148

PATIENT
  Age: 60 Year
  Sex: Female

DRUGS (2)
  1. HERCEPTIN [Suspect]
     Indication: BREAST CANCER
     Route: 042
     Dates: end: 20100901
  2. TAXOTERE [Suspect]
     Indication: BREAST CANCER
     Dosage: LAST CURE
     Route: 065
     Dates: end: 20100901

REACTIONS (2)
  - GENERALISED OEDEMA [None]
  - TOXIC SKIN ERUPTION [None]
